FAERS Safety Report 10034735 (Version 3)
Quarter: 2016Q2

REPORT INFORMATION
  Report Type: Spontaneous
  Country: US (occurrence: US)
  Receive Date: 20140325
  Receipt Date: 20160523
  Transmission Date: 20160815
  Serious: Yes (Hospitalization, Other)
  Sender: FDA-Public Use
  Company Number: US-SA-2014SA036542

PATIENT
  Age: 43 Year
  Sex: Male
  Weight: 75 kg

DRUGS (3)
  1. FABRAZYME [Suspect]
     Active Substance: AGALSIDASE BETA
     Indication: FABRY^S DISEASE
     Route: 041
     Dates: start: 200908, end: 20151006
  2. FABRAZYME [Suspect]
     Active Substance: AGALSIDASE BETA
     Indication: FABRY^S DISEASE
     Route: 041
  3. RITUXAN [Concomitant]
     Active Substance: RITUXIMAB
     Dates: start: 2012

REACTIONS (3)
  - End stage renal disease [Not Recovered/Not Resolved]
  - Surgery [Unknown]
  - Hospitalisation [Unknown]

NARRATIVE: CASE EVENT DATE: 201511
